FAERS Safety Report 7243705-X (Version None)
Quarter: 2011Q1

REPORT INFORMATION
  Report Type: 
  Country: None (occurrence: None)
  Receive Date: 20110119
  Receipt Date: 20110119
  Transmission Date: 20110831
  Serious: Yes (Other)
  Sender: FDA-Public Use
  Company Number: None

PATIENT
  Age: 51 Year
  Sex: Female
  Weight: 77.1115 kg

DRUGS (1)
  1. OMNIPRED [Suspect]
     Indication: EYE INFECTION
     Dosage: 2 DROPS TWICE DAILY INTRACORNEA
     Route: 021
     Dates: start: 20110113, end: 20110115

REACTIONS (3)
  - VISION BLURRED [None]
  - PURULENCE [None]
  - EYE DISCHARGE [None]
